FAERS Safety Report 6994204-1 (Version None)
Quarter: 2010Q3

REPORT INFORMATION
  Report Type: 
  Country: None (occurrence: None)
  Receive Date: 20100917
  Receipt Date: 20100620
  Transmission Date: 20110219
  Serious: No
  Sender: FDA-Public Use
  Company Number: US-ASTRAZENECA-2010SE28832

PATIENT
  Age: 60 Year
  Sex: Female
  Weight: 86.6 kg

DRUGS (7)
  1. SEROQUEL [Suspect]
     Indication: BIPOLAR DISORDER
     Route: 048
     Dates: start: 20080101, end: 20100618
  2. ATENOLOL [Concomitant]
     Indication: HYPERTENSION
     Route: 048
     Dates: start: 20100101
  3. DEPAKOTE [Concomitant]
     Indication: BIPOLAR DISORDER
     Route: 048
     Dates: start: 20100101
  4. LEXAPRO [Concomitant]
     Indication: BIPOLAR DISORDER
     Route: 048
     Dates: start: 20100101
  5. LISINOPRIL [Concomitant]
     Indication: HYPERTENSION
     Route: 048
     Dates: start: 20100101
  6. NALTREXONE [Concomitant]
     Indication: BIPOLAR DISORDER
     Route: 048
     Dates: start: 20100101
  7. SYNTHROID [Concomitant]
     Indication: THYROID DISORDER
     Route: 048
     Dates: start: 20100101

REACTIONS (9)
  - DECREASED APPETITE [None]
  - DIARRHOEA [None]
  - DRUG DOSE OMISSION [None]
  - FEELING OF BODY TEMPERATURE CHANGE [None]
  - FORMICATION [None]
  - HYPERHIDROSIS [None]
  - INSOMNIA [None]
  - RESTLESSNESS [None]
  - WEIGHT DECREASED [None]
